FAERS Safety Report 9256984 (Version 1)
Quarter: 2013Q2

REPORT INFORMATION
  Report Type: Spontaneous
  Country: US (occurrence: None)
  Receive Date: 20130424
  Receipt Date: 20130424
  Transmission Date: 20140414
  Serious: Yes (Death, Hospitalization, Disabling, Other)
  Sender: FDA-Public Use
  Company Number: None

PATIENT
  Age: 83 Year
  Sex: Male
  Weight: 77.8 kg

DRUGS (2)
  1. ZOLEDRONIC ACID [Suspect]
     Route: 042
     Dates: start: 20130319, end: 20130319
  2. LISINOPRIL [Suspect]
     Route: 048

REACTIONS (7)
  - Cough [None]
  - Wheezing [None]
  - Nausea [None]
  - Vomiting [None]
  - Gastric haemorrhage [None]
  - Influenza like illness [None]
  - Circulatory collapse [None]
